FAERS Safety Report 13518686 (Version 5)
Quarter: 2017Q4

REPORT INFORMATION
  Report Type: Spontaneous
  Country: CA (occurrence: CA)
  Receive Date: 20170505
  Receipt Date: 20171117
  Transmission Date: 20180320
  Serious: Yes (Hospitalization)
  Sender: FDA-Public Use
  Company Number: CA-BRISTOL-MYERS SQUIBB COMPANY-BMS-2017-036730

PATIENT
  Age: 41 Year
  Sex: Female

DRUGS (8)
  1. CYMBALTA [Suspect]
     Active Substance: DULOXETINE HYDROCHLORIDE
     Indication: PRODUCT USED FOR UNKNOWN INDICATION
     Dosage: 30 MG, UNK
     Route: 065
  2. ABILIFY [Suspect]
     Active Substance: ARIPIPRAZOLE
     Indication: PRODUCT USED FOR UNKNOWN INDICATION
     Dosage: 1 MG, UNK
     Route: 065
  3. CYMBALTA [Suspect]
     Active Substance: DULOXETINE HYDROCHLORIDE
     Indication: PRODUCT USED FOR UNKNOWN INDICATION
     Dosage: 90 MG, UNK
     Route: 065
  4. CLONAZEPAM. [Suspect]
     Active Substance: CLONAZEPAM
     Indication: INSOMNIA
     Dosage: 1 DF, QD
     Route: 065
  5. CYMBALTA [Suspect]
     Active Substance: DULOXETINE HYDROCHLORIDE
     Indication: PRODUCT USED FOR UNKNOWN INDICATION
     Dosage: 60 MG, UNK
     Route: 065
  6. ABILIFY MAINTENA [Suspect]
     Active Substance: ARIPIPRAZOLE
     Indication: PRODUCT USED FOR UNKNOWN INDICATION
     Dosage: 2 G, UNK
     Route: 030
  7. ABILIFY [Suspect]
     Active Substance: ARIPIPRAZOLE
     Indication: PRODUCT USED FOR UNKNOWN INDICATION
     Dosage: 0.5 MG, UNK
     Route: 065
  8. QUETIAPINE FUMARATE. [Suspect]
     Active Substance: QUETIAPINE FUMARATE
     Indication: INSOMNIA
     Dosage: 25 MG, QD
     Route: 048

REACTIONS (7)
  - Drug interaction [Unknown]
  - Stubbornness [Unknown]
  - Mood altered [Unknown]
  - Abnormal behaviour [Unknown]
  - Product use issue [Unknown]
  - Prescribed underdose [Unknown]
  - Thinking abnormal [Unknown]
